FAERS Safety Report 16636133 (Version 1)
Quarter: 2019Q3

REPORT INFORMATION
  Report Type: Spontaneous
  Country: US (occurrence: US)
  Receive Date: 20190613
  Receipt Date: 20190613
  Transmission Date: 20191004
  Serious: No
  Sender: FDA-Public Use
  Company Number: None

PATIENT
  Age: 29 Year
  Sex: Female

DRUGS (1)
  1. GLATIRAMER 40MG PFS INJ  (12/BOX) [Suspect]
     Active Substance: GLATIRAMER
     Dates: start: 201905

REACTIONS (3)
  - Injection site bruising [None]
  - Injection site nodule [None]
  - Injection site pain [None]

NARRATIVE: CASE EVENT DATE: 20190613
